FAERS Safety Report 5908600-4 (Version None)
Quarter: 2008Q3

REPORT INFORMATION
  Report Type: 
  Country: None (occurrence: None)
  Receive Date: 20080930
  Receipt Date: 20080917
  Transmission Date: 20090109
  Serious: Yes (Other)
  Sender: FDA-Public Use
  Company Number: 2008MB000095

PATIENT
  Age: 53 Year
  Sex: Female
  Weight: 83.0083 kg

DRUGS (15)
  1. KEFLEX [Suspect]
     Indication: SWEAT GLAND INFECTION
     Dates: start: 20040101
  2. ENZASTAURIN (ENZASTAURIN) [Suspect]
     Indication: LYMPHOMA
     Dosage: QD; PO
     Route: 048
     Dates: start: 20071113, end: 20080916
  3. ZOFRAN /00955302/ [Concomitant]
  4. ALBUTEROL [Concomitant]
  5. BACTRIM [Concomitant]
  6. ENALAPRIL MALEATE [Concomitant]
  7. FUROSEMIDE [Concomitant]
  8. HYDROCODONE BITARTRATE [Concomitant]
  9. LYRICA [Concomitant]
  10. METFORMIN HCL [Concomitant]
  11. NOVOLOG MIX 70/30 [Concomitant]
  12. POTASSIUM CHLORIDE [Concomitant]
  13. TRICOR [Concomitant]
  14. VENTOLIN [Concomitant]
  15. ZYRTEC /008845302/ [Concomitant]

REACTIONS (1)
  - HYPERTRIGLYCERIDAEMIA [None]
